FAERS Safety Report 9553504 (Version 1)
Quarter: 2013Q3

REPORT INFORMATION
  Report Type: Spontaneous
  Country: GB (occurrence: GB)
  Receive Date: 20130925
  Receipt Date: 20130925
  Transmission Date: 20140515
  Serious: Yes (Other)
  Sender: FDA-Public Use
  Company Number: GB-PFIZER INC-2013273615

PATIENT
  Age: 58 Year
  Sex: Female
  Weight: 74 kg

DRUGS (6)
  1. SERTRALINE HCL [Suspect]
     Indication: DEPRESSION
     Dosage: 50 MG
     Route: 048
     Dates: start: 20101116, end: 201306
  2. VENTOLIN [Concomitant]
     Indication: CHRONIC OBSTRUCTIVE PULMONARY DISEASE
     Dosage: WHEN REQUIRED
     Route: 055
     Dates: start: 20130615
  3. TIOTROPIUM [Concomitant]
     Indication: CHRONIC OBSTRUCTIVE PULMONARY DISEASE
     Dosage: UNK
     Route: 055
     Dates: start: 20130305
  4. SERETIDE [Concomitant]
     Indication: CHRONIC OBSTRUCTIVE PULMONARY DISEASE
     Dosage: 2 PUFFS TWICE A DAY
     Route: 055
     Dates: start: 20130501
  5. FOLIC ACID [Concomitant]
     Indication: FOLATE DEFICIENCY
     Dosage: 5MG- 400MICROGRAMS
     Route: 048
     Dates: start: 20130213
  6. PREGABALIN [Concomitant]
     Indication: SCIATICA
     Dosage: 75MG-300MG TWICE A DAY
     Route: 048
     Dates: start: 20110805

REACTIONS (2)
  - Liver function test abnormal [Recovering/Resolving]
  - Antinuclear antibody positive [Recovering/Resolving]
